FAERS Safety Report 8177919-1 (Version None)
Quarter: 2012Q1

REPORT INFORMATION
  Report Type: 
  Country: None (occurrence: None)
  Receive Date: 20120126
  Receipt Date: 20111021
  Transmission Date: 20120608
  Serious: No
  Sender: FDA-Public Use
  Company Number: PHEH2011US08084

PATIENT
  Age: 67 Year
  Sex: Male

DRUGS (8)
  1. ZOCOR [Concomitant]
  2. JANUVIA [Concomitant]
  3. GLUCOPHAGE [Concomitant]
  4. GLUCOTROL [Concomitant]
  5. HYDRODIURIL [Concomitant]
  6. MULTIVITAMINS (ASCORBIC ACID, ERGOCALCIFEROL, FOLIC ACID, NICOTINAMIDE [Concomitant]
  7. AFINITOR [Suspect]
     Indication: NEUROENDOCRINE CARCINOMA
     Dosage: 10 MG, QD, ORAL
     Route: 048
  8. PREVACID [Concomitant]

REACTIONS (3)
  - SKIN DISORDER [None]
  - DRY SKIN [None]
  - SKIN DISCOLOURATION [None]
